FAERS Safety Report 9505784 (Version 1)
Quarter: 2013Q1

REPORT INFORMATION
  Report Type: Spontaneous
  Country: DE (occurrence: None)
  Receive Date: 20130225
  Receipt Date: 20130225
  Transmission Date: 20140127
  Serious: Yes (Other)
  Sender: FDA-Public Use
  Company Number: 2012-662

PATIENT
  Sex: Female

DRUGS (2)
  1. PRIALT [Suspect]
     Dosage: ONCE AN HR
     Route: 037
  2. MORPHINE SULFATE (MORPHINE SULFATE) INJECTION [Suspect]
     Dosage: ONCE AN HR
     Route: 037

REACTIONS (2)
  - Suicidal ideation [None]
  - Overdose [None]
